FAERS Safety Report 8935620 (Version 2)
Quarter: 2013Q3

REPORT INFORMATION
  Report Type: Report from Study
  Country: JP (occurrence: JP)
  Receive Date: 20121130
  Receipt Date: 20130923
  Transmission Date: 20140515
  Serious: Yes (Other)
  Sender: FDA-Public Use
  Company Number: PHHY2012JP109482

PATIENT
  Age: 31 Year
  Sex: Female

DRUGS (51)
  1. LEPONEX / CLOZARIL [Suspect]
     Indication: SCHIZOPHRENIA
     Dosage: 12.5 MG, QD
     Route: 048
     Dates: start: 20121113, end: 20121114
  2. LEPONEX / CLOZARIL [Suspect]
     Dosage: 25 MG, QD
     Route: 048
     Dates: start: 20121115, end: 20121118
  3. LEPONEX / CLOZARIL [Suspect]
     Dosage: 37.5 MG, QD
     Route: 048
     Dates: start: 20121119, end: 20121122
  4. LEPONEX / CLOZARIL [Suspect]
     Dosage: 50 MG, QD
     Route: 048
     Dates: start: 20121123, end: 20121125
  5. LEPONEX / CLOZARIL [Suspect]
     Dosage: 62.5 MG, QD
     Route: 048
     Dates: start: 20121126, end: 20121129
  6. LEPONEX / CLOZARIL [Suspect]
     Dosage: 12.5 MG, QD
     Route: 048
     Dates: start: 20121219, end: 20121220
  7. LEPONEX / CLOZARIL [Suspect]
     Dosage: 25 MG, QD
     Route: 048
     Dates: start: 20121221, end: 20121223
  8. LEPONEX / CLOZARIL [Suspect]
     Dosage: 37.5 MG, QD
     Route: 048
     Dates: start: 20121224, end: 20121227
  9. LEPONEX / CLOZARIL [Suspect]
     Dosage: 50 MG, QD
     Route: 048
     Dates: start: 20121228, end: 20121230
  10. LEPONEX / CLOZARIL [Suspect]
     Dosage: 62.5 MG, QD
     Route: 048
     Dates: start: 20121231, end: 20130103
  11. LEPONEX / CLOZARIL [Suspect]
     Dosage: 75 MG, QD
     Route: 048
     Dates: start: 20130104, end: 20130107
  12. LEPONEX / CLOZARIL [Suspect]
     Dosage: 87.5 MG, QD
     Route: 048
     Dates: start: 20130108, end: 20130110
  13. LEPONEX / CLOZARIL [Suspect]
     Dosage: 100 MG, QD
     Route: 048
     Dates: start: 20130111, end: 20130113
  14. LEPONEX / CLOZARIL [Suspect]
     Dosage: 125 MG, QD
     Route: 048
     Dates: start: 20130114, end: 20130117
  15. LEPONEX / CLOZARIL [Suspect]
     Dosage: 150 MG, QD
     Route: 048
     Dates: start: 20130118, end: 20130120
  16. LEPONEX / CLOZARIL [Suspect]
     Dosage: 175 MG, QD
     Route: 048
     Dates: start: 20130121, end: 20130124
  17. LEPONEX / CLOZARIL [Suspect]
     Dosage: 200 MG, QD
     Route: 048
     Dates: start: 20130125, end: 20130127
  18. LEPONEX / CLOZARIL [Suspect]
     Dosage: 225 MG, QD
     Route: 048
     Dates: start: 20130128, end: 20130131
  19. LEPONEX / CLOZARIL [Suspect]
     Dosage: 250 MG, QD
     Route: 048
     Dates: start: 20130201, end: 20130203
  20. LEPONEX / CLOZARIL [Suspect]
     Dosage: 275 MG, QD
     Route: 048
     Dates: start: 20130204, end: 20130207
  21. LEPONEX / CLOZARIL [Suspect]
     Dosage: 300 MG, QD
     Route: 048
     Dates: start: 20130208, end: 20130210
  22. LEPONEX / CLOZARIL [Suspect]
     Dosage: 325 MG, QD
     Route: 048
     Dates: start: 20130211
  23. CHLORPROMAZINE HYDROCHLORIDE [Concomitant]
     Dosage: 450 MG, UNK
     Route: 048
     Dates: start: 20120823
  24. CHLORPROMAZINE HYDROCHLORIDE [Concomitant]
     Dosage: 375.5 MG, UNK
     Route: 048
  25. CHLORPROMAZINE HYDROCHLORIDE [Concomitant]
     Dosage: 225 MG, UNK
     Route: 048
  26. CHLORPROMAZINE HYDROCHLORIDE [Concomitant]
     Dosage: 10 MG, UNK
     Route: 048
  27. CHLORPROMAZINE HYDROCHLORIDE [Concomitant]
     Dosage: 110 MG, UNK
     Route: 048
  28. CHLORPROMAZINE HYDROCHLORIDE [Concomitant]
     Dosage: 50 MG, UNK
     Route: 048
     Dates: end: 20130110
  29. HALOPERIDOL [Concomitant]
     Dosage: 6 MG, UNK
     Route: 048
     Dates: start: 20120712
  30. HALOPERIDOL [Concomitant]
     Dosage: 4.5 MG, UNK
     Route: 048
  31. HALOPERIDOL [Concomitant]
     Dosage: 3 MG, UNK
     Route: 048
  32. HALOPERIDOL [Concomitant]
     Dosage: 2.25 MG, UNK
     Route: 048
  33. HALOPERIDOL [Concomitant]
     Dosage: 1.5 MG, UNK
     Route: 048
  34. HALOPERIDOL [Concomitant]
     Dosage: 0.75 MG, UNK
     Route: 048
     Dates: end: 20130110
  35. RISPERIDONE [Concomitant]
     Dosage: 12 MG, UNK
     Route: 048
     Dates: start: 20121011
  36. RISPERIDONE [Concomitant]
     Dosage: 9 MG, UNK
     Route: 048
  37. RISPERIDONE [Concomitant]
     Dosage: 6 MG, UNK
     Route: 048
  38. RISPERIDONE [Concomitant]
     Dosage: 4.5 MG, UNK
     Route: 048
  39. RISPERIDONE [Concomitant]
     Dosage: 3 MG, UNK
     Route: 048
  40. RISPERIDONE [Concomitant]
     Dosage: 1.5 MG, UNK
     Route: 048
     Dates: end: 20130110
  41. BIPERIDEN HYDROCHLORIDE [Concomitant]
     Indication: SCHIZOPHRENIA
     Dosage: 6 MG, UNK
     Route: 048
     Dates: start: 20130711
  42. MAGNESIUM OXIDE [Concomitant]
     Indication: CONSTIPATION
     Dosage: 1500 MG, UNK
     Route: 048
     Dates: start: 20120614
  43. PANTETHINE [Concomitant]
     Indication: CONSTIPATION
     Dosage: 300 MG, UNK
     Route: 048
     Dates: start: 20120624
  44. FLUNITRAZEPAM [Concomitant]
     Indication: SCHIZOPHRENIA
     Dosage: 2 MG, UNK
     Route: 048
     Dates: start: 20120508
  45. QUAZEPAM [Concomitant]
     Indication: SCHIZOPHRENIA
     Dosage: 15 MG, UNK
     Route: 048
     Dates: start: 20120806
  46. PYRETHIA//PROMETHAZINE HYDROCHLORIDE [Concomitant]
     Indication: SCHIZOPHRENIA
     Dosage: 25 MG, UNK
     Route: 048
     Dates: start: 20130104
  47. PYRETHIA//PROMETHAZINE HYDROCHLORIDE [Concomitant]
     Dosage: 50 MG, UNK
     Route: 048
     Dates: start: 20130104
  48. TAMIFLU [Concomitant]
     Indication: PROPHYLAXIS
     Dosage: 25 MG, UNK
     Route: 048
     Dates: start: 20130115, end: 20130124
  49. AKIRIDEN [Concomitant]
     Indication: SCHIZOPHRENIA
     Dosage: 5 MG, UNK
     Route: 048
     Dates: start: 20130129
  50. AKIRIDEN [Concomitant]
     Dosage: 4 MG, UNK
     Route: 048
  51. AKIRIDEN [Concomitant]
     Dosage: 3 UNK, UNK
     Route: 048
     Dates: end: 20130213

REACTIONS (2)
  - Pneumonia aspiration [Recovered/Resolved]
  - Pyrexia [Recovered/Resolved]
